FAERS Safety Report 5419223-8 (Version None)
Quarter: 2007Q3

REPORT INFORMATION
  Report Type: 
  Country: None (occurrence: None)
  Receive Date: 20070817
  Receipt Date: 20070817
  Transmission Date: 20080115
  Serious: Yes (Hospitalization)
  Sender: FDA-Public Use
  Company Number: None

PATIENT
  Sex: Female

DRUGS (1)
  1. BEVACIZUMAB [Suspect]
     Indication: PANCREATIC CARCINOMA METASTATIC
     Dosage: 10 MG, OVER 90 MIN, IV
     Route: 042
     Dates: start: 20070726

REACTIONS (2)
  - CATHETER RELATED INFECTION [None]
  - STAPHYLOCOCCAL BACTERAEMIA [None]
